FAERS Safety Report 13698615 (Version 3)
Quarter: 2017Q4

REPORT INFORMATION
  Report Type: Spontaneous
  Country: US (occurrence: US)
  Receive Date: 20170628
  Receipt Date: 20171102
  Transmission Date: 20180320
  Serious: Yes (Hospitalization)
  Sender: FDA-Public Use
  Company Number: US-ACTELION-A-US2017-155811

PATIENT
  Age: 80 Year
  Sex: Female

DRUGS (12)
  1. BUMETANIDE. [Concomitant]
     Active Substance: BUMETANIDE
  2. POTASSIUM [Concomitant]
     Active Substance: POTASSIUM
  3. ADEMPAS [Concomitant]
     Active Substance: RIOCIGUAT
  4. IRON [Concomitant]
     Active Substance: IRON
  5. TYLENOL [Concomitant]
     Active Substance: ACETAMINOPHEN
  6. EVISTA [Concomitant]
     Active Substance: RALOXIFENE HYDROCHLORIDE
  7. TEMAZEPAM. [Concomitant]
     Active Substance: TEMAZEPAM
  8. UNITHROID [Concomitant]
     Active Substance: LEVOTHYROXINE SODIUM
  9. FISH OIL [Concomitant]
     Active Substance: FISH OIL
  10. OMEPRAZOLE. [Concomitant]
     Active Substance: OMEPRAZOLE
  11. AMIODARONE [Concomitant]
     Active Substance: AMIODARONE
  12. TRACLEER [Suspect]
     Active Substance: BOSENTAN
     Indication: PULMONARY ARTERIAL HYPERTENSION
     Dosage: 62.5 MG, BID
     Route: 048
     Dates: start: 20120911

REACTIONS (8)
  - Fluid retention [Unknown]
  - Gastrooesophageal reflux disease [Unknown]
  - Pulmonary oedema [Recovered/Resolved]
  - Dyspnoea [Unknown]
  - Swelling [Unknown]
  - Pneumonia [Recovered/Resolved]
  - Peripheral swelling [Unknown]
  - Pericardial effusion [Unknown]

NARRATIVE: CASE EVENT DATE: 20170526
